FAERS Safety Report 24865086 (Version 1)
Quarter: 2025Q1

REPORT INFORMATION
  Report Type: Spontaneous
  Country: US (occurrence: US)
  Receive Date: 20250121
  Receipt Date: 20250121
  Transmission Date: 20250409
  Serious: No
  Sender: Kenvue
  Company Number: US-KENVUE-20241205427

PATIENT
  Age: 40 Year
  Sex: Male

DRUGS (2)
  1. MENS ROGAINE EXTRA STRENGTH [Suspect]
     Active Substance: MINOXIDIL
     Indication: Alopecia
     Dosage: UNK UNK, ONCE A DAY
     Route: 061
     Dates: start: 20240915, end: 202412
  2. MENS ROGAINE EXTRA STRENGTH [Suspect]
     Active Substance: MINOXIDIL
     Dosage: UNK UNK, TWICE A DAY
     Route: 061
     Dates: start: 2024, end: 2024

REACTIONS (5)
  - Alopecia [Not Recovered/Not Resolved]
  - Application site inflammation [Recovering/Resolving]
  - Application site warmth [Recovering/Resolving]
  - Inappropriate schedule of product administration [Unknown]
  - Wrong technique in product usage process [Unknown]

NARRATIVE: CASE EVENT DATE: 20240915
